FAERS Safety Report 24267221 (Version 2)
Quarter: 2024Q3

REPORT INFORMATION
  Report Type: Spontaneous
  Country: JP (occurrence: JP)
  Receive Date: 20240830
  Receipt Date: 20240925
  Transmission Date: 20241016
  Serious: Yes (Hospitalization, Other)
  Sender: GILEAD
  Company Number: JP-GILEAD-2024-0685412

PATIENT
  Age: 4 Decade
  Sex: Female

DRUGS (1)
  1. EPCLUSA [Suspect]
     Active Substance: SOFOSBUVIR\VELPATASVIR
     Indication: Hepatitis C antibody positive
     Dosage: UNK
     Route: 065

REACTIONS (6)
  - Hepatitis C [Unknown]
  - Hyperammonaemia [Unknown]
  - Spontaneous bacterial peritonitis [Unknown]
  - Acute on chronic liver failure [Unknown]
  - Urinary tract infection [Unknown]
  - Drug ineffective [Unknown]
